FAERS Safety Report 5706278-6 (Version None)
Quarter: 2008Q2

REPORT INFORMATION
  Report Type: 
  Country: None (occurrence: None)
  Receive Date: 20080415
  Receipt Date: 20080331
  Transmission Date: 20081010
  Serious: Yes (Hospitalization)
  Sender: FDA-Public Use
  Company Number: SK-GENENTECH-258276

PATIENT
  Age: 57 Year
  Sex: Female

DRUGS (1)
  1. HERCEPTIN [Suspect]
     Indication: BREAST CANCER
     Dosage: UNK, UNK
     Dates: end: 20080218

REACTIONS (2)
  - ANAEMIA [None]
  - GASTRIC ULCER [None]
